FAERS Safety Report 9914141 (Version 1)
Quarter: 2014Q1

REPORT INFORMATION
  Report Type: Spontaneous
  Country: US (occurrence: US)
  Receive Date: 20140220
  Receipt Date: 20140220
  Transmission Date: 20141002
  Serious: Yes (Other)
  Sender: FDA-Public Use
  Company Number: US-PFIZER INC-2014044871

PATIENT
  Sex: Female

DRUGS (1)
  1. TOVIAZ [Suspect]
     Dosage: UNK
     Dates: start: 201401

REACTIONS (4)
  - Hypertension [Unknown]
  - Blood pressure fluctuation [Unknown]
  - Pulse abnormal [Unknown]
  - Headache [Unknown]
